FAERS Safety Report 7052649-8 (Version None)
Quarter: 2010Q4

REPORT INFORMATION
  Report Type: 
  Country: None (occurrence: None)
  Receive Date: 20101019
  Receipt Date: 20101011
  Transmission Date: 20110411
  Serious: Yes (Hospitalization)
  Sender: FDA-Public Use
  Company Number: US-AMGEN INC.-KDL421555

PATIENT

DRUGS (1)
  1. ENBREL [Suspect]
     Indication: ANKYLOSING SPONDYLITIS
     Dosage: 50 MG, QWK
     Route: 058
     Dates: start: 20090401

REACTIONS (6)
  - ABDOMINAL DISCOMFORT [None]
  - CHOLELITHIASIS [None]
  - HEADACHE [None]
  - PAIN [None]
  - RASH PAPULAR [None]
  - RASH PRURITIC [None]
